FAERS Safety Report 6259919-1 (Version None)
Quarter: 2009Q3

REPORT INFORMATION
  Report Type: 
  Country: None (occurrence: None)
  Receive Date: 20090708
  Receipt Date: 20090630
  Transmission Date: 20100115
  Serious: Yes (Other)
  Sender: FDA-Public Use
  Company Number: PHHY2009MX26626

PATIENT
  Sex: Female

DRUGS (5)
  1. ACLASTA [Suspect]
     Indication: OSTEOPOROSIS
     Dosage: 5 MG/100 ML
     Dates: start: 20080503
  2. PREXIGE [Suspect]
     Dosage: UNK
  3. NORVASC [Concomitant]
  4. LOPRESOR [Concomitant]
  5. LEXAPRO [Concomitant]

REACTIONS (2)
  - DIALYSIS [None]
  - RENAL DISORDER [None]
